FAERS Safety Report 4964410-6 (Version None)
Quarter: 2006Q1

REPORT INFORMATION
  Report Type: 
  Country: None (occurrence: None)
  Receive Date: 20060331
  Receipt Date: 20060315
  Transmission Date: 20060701
  Serious: Yes (Other)
  Sender: FDA-Public Use
  Company Number: ACO_0221_2006

PATIENT
  Age: 65 Year
  Sex: Female
  Weight: 60 kg

DRUGS (3)
  1. SIRDALUD [Suspect]
     Indication: BRACHIAL PLEXOPATHY
     Dosage: 2 MG TID PO
     Route: 048
     Dates: start: 20060220, end: 20060225
  2. DICLOFENAC SODIUM [Concomitant]
  3. LEMOD [Concomitant]

REACTIONS (2)
  - FEELING ABNORMAL [None]
  - SEDATION [None]
